FAERS Safety Report 6813995-3 (Version None)
Quarter: 2010Q3

REPORT INFORMATION
  Report Type: 
  Country: None (occurrence: None)
  Receive Date: 20100702
  Receipt Date: 20100623
  Transmission Date: 20110219
  Serious: Yes (Other)
  Sender: FDA-Public Use
  Company Number: ZA-ASTRAZENECA-2009SE18536

PATIENT
  Age: 21416 Day
  Sex: Male
  Weight: 70 kg

DRUGS (8)
  1. CRESTOR [Suspect]
     Indication: HYPERCHOLESTEROLAEMIA
     Route: 048
     Dates: start: 20060901, end: 20091010
  2. CRESTOR [Suspect]
     Indication: BLOOD TRIGLYCERIDES INCREASED
     Route: 048
     Dates: start: 20060901, end: 20091010
  3. CRESTOR [Suspect]
     Route: 048
     Dates: start: 20091116
  4. CRESTOR [Suspect]
     Route: 048
     Dates: start: 20091116
  5. GLUCOPHAGE [Concomitant]
  6. TARIG [Concomitant]
  7. DORMINOCT [Concomitant]
  8. ASPIRIN [Concomitant]

REACTIONS (3)
  - EPIDIDYMAL ENLARGEMENT [None]
  - EPIDIDYMITIS [None]
  - RETROGRADE EJACULATION [None]
